FAERS Safety Report 9736414 (Version 1)
Quarter: 2013Q4

REPORT INFORMATION
  Report Type: Spontaneous
  Country: US (occurrence: US)
  Receive Date: 20131206
  Receipt Date: 20131206
  Transmission Date: 20140711
  Serious: Yes (Hospitalization)
  Sender: FDA-Public Use
  Company Number: PHHY2013US139526

PATIENT
  Age: 79 Year
  Sex: Female

DRUGS (5)
  1. AMIODARONE [Suspect]
     Indication: ATRIAL FLUTTER
     Route: 042
  2. AMIODARONE [Suspect]
     Indication: ATRIAL FLUTTER
     Dosage: 400 MG, BID
     Route: 048
  3. AMIODARONE [Suspect]
     Dosage: 200 MG, BID
     Route: 048
  4. AMIODARONE [Suspect]
     Dosage: 400 MG, BID
  5. AMIODARONE [Suspect]
     Dosage: 100 MG, BID
     Route: 048

REACTIONS (9)
  - Neurotoxicity [Recovered/Resolved]
  - Lethargy [Recovered/Resolved]
  - Asthenia [Recovered/Resolved]
  - Ataxia [Recovered/Resolved]
  - Paraesthesia [Recovered/Resolved]
  - Muscular weakness [Recovered/Resolved]
  - Balance disorder [Recovered/Resolved]
  - Gait disturbance [Recovered/Resolved]
  - Extensor plantar response [Recovered/Resolved]
